FAERS Safety Report 23098191 (Version 1)
Quarter: 2023Q4

REPORT INFORMATION
  Report Type: Spontaneous
  Country: US (occurrence: None)
  Receive Date: 20231020
  Receipt Date: 20231020
  Transmission Date: 20240109
  Serious: Yes (Death)
  Sender: FDA-Public Use
  Company Number: None

PATIENT
  Age: 91 Year
  Sex: Male

DRUGS (3)
  1. DROXIDOPA [Suspect]
     Active Substance: DROXIDOPA
     Indication: Fungal infection
     Dosage: FREQUENCY : AS DIRECTED;?
     Route: 048
     Dates: start: 20221019, end: 20231014
  2. DROXIDOPA [Suspect]
     Active Substance: DROXIDOPA
     Dosage: FREQUENCY : AS DIRECTED;?
     Route: 048
  3. NORTHERA [Concomitant]

REACTIONS (1)
  - Death [None]

NARRATIVE: CASE EVENT DATE: 20231014
